FAERS Safety Report 10681697 (Version 1)
Quarter: 2014Q4

REPORT INFORMATION
  Report Type: Spontaneous
  Country: TW (occurrence: TW)
  Receive Date: 20141230
  Receipt Date: 20141230
  Transmission Date: 20150529
  Serious: Yes (Life-Threatening, Hospitalization)
  Sender: FDA-Public Use
  Company Number: PHHY2014TW168456

PATIENT
  Age: 32 Year
  Sex: Male

DRUGS (1)
  1. SANDOSTATIN [Suspect]
     Active Substance: OCTREOTIDE ACETATE
     Indication: GASTROINTESTINAL HAEMORRHAGE
     Route: 065

REACTIONS (6)
  - Hepatic cirrhosis [Unknown]
  - Oesophageal varices haemorrhage [Unknown]
  - Splenomegaly [Unknown]
  - Portal vein thrombosis [Unknown]
  - Ascites [Unknown]
  - Collateral circulation [Unknown]
